FAERS Safety Report 7897121-8 (Version None)
Quarter: 2011Q4

REPORT INFORMATION
  Report Type: 
  Country: None (occurrence: None)
  Receive Date: 20111107
  Receipt Date: 20111102
  Transmission Date: 20120403
  Serious: Yes (Other)
  Sender: FDA-Public Use
  Company Number: US-AMGEN-USASP2011057232

PATIENT
  Age: 72 Year
  Sex: Male

DRUGS (8)
  1. SPIRONOLACTONE [Concomitant]
  2. COREG [Concomitant]
  3. NPLATE [Suspect]
     Indication: THROMBOCYTOPENIC PURPURA
     Dates: start: 20110926
  4. AMIODARONE HCL [Concomitant]
  5. SIMVASTATIN [Concomitant]
  6. LISINOPRIL [Concomitant]
     Dosage: UNK
  7. PREDNISONE [Concomitant]
     Dosage: 40 MG, UNK
  8. PEPCID AC [Concomitant]
     Dosage: UNK

REACTIONS (7)
  - CHEST PAIN [None]
  - DYSPNOEA [None]
  - BLOOD PRESSURE INCREASED [None]
  - MALAISE [None]
  - WEIGHT INCREASED [None]
  - PLATELET COUNT DECREASED [None]
  - AORTIC VALVE DISEASE [None]
